FAERS Safety Report 20719795 (Version 4)
Quarter: 2022Q3

REPORT INFORMATION
  Report Type: Report from Study
  Country: US (occurrence: US)
  Receive Date: 20220418
  Receipt Date: 20220709
  Transmission Date: 20221026
  Serious: No
  Sender: FDA-Public Use
  Company Number: US-NOVARTISTESTPH-NVSC2022US086365

PATIENT
  Sex: Female

DRUGS (1)
  1. ENTRESTO [Suspect]
     Active Substance: SACUBITRIL\VALSARTAN
     Indication: Product used for unknown indication
     Dosage: 24/26MG 2 TABLETS, BID
     Route: 048
     Dates: start: 202203

REACTIONS (4)
  - Confusional state [Unknown]
  - Throat clearing [Unknown]
  - Hypertension [Not Recovered/Not Resolved]
  - Cough [Recovered/Resolved]
